FAERS Safety Report 6220000-9 (Version None)
Quarter: 2009Q2

REPORT INFORMATION
  Report Type: 
  Country: None (occurrence: None)
  Receive Date: 20090609
  Receipt Date: 20090609
  Transmission Date: 20091009
  Serious: Yes (Hospitalization, Other)
  Sender: FDA-Public Use
  Company Number: US-PFIZER INC-2008159866

PATIENT
  Sex: Male
  Weight: 113.39 kg

DRUGS (4)
  1. XANAX [Suspect]
     Indication: ANXIETY
     Dosage: UNK
     Dates: start: 20060801
  2. GEODON [Suspect]
     Indication: ANXIETY
     Dosage: UNK
     Dates: start: 20080801
  3. DEPAKOTE [Concomitant]
     Dosage: UNK
  4. PROZAC [Concomitant]
     Dosage: UNK

REACTIONS (4)
  - DYSTONIA [None]
  - NERVOUSNESS [None]
  - PANIC ATTACK [None]
  - TREMOR [None]
